FAERS Safety Report 7860526-5 (Version None)
Quarter: 2011Q4

REPORT INFORMATION
  Report Type: 
  Country: None (occurrence: None)
  Receive Date: 20111027
  Receipt Date: 20111025
  Transmission Date: 20120403
  Serious: No
  Sender: FDA-Public Use
  Company Number: US-PFIZER INC-2011261484

PATIENT
  Sex: Male
  Weight: 66.213 kg

DRUGS (5)
  1. DIOVAN HCT [Concomitant]
     Indication: BLOOD PRESSURE ABNORMAL
     Dosage: 160/25 MG, DAILY
     Route: 048
  2. CHANTIX [Suspect]
     Dosage: 1 MG, 2X/DAY
     Route: 048
     Dates: start: 20111001
  3. VALIUM [Concomitant]
     Indication: ABDOMINAL PAIN UPPER
     Dosage: 2.5 MG, 3X/DAY
     Route: 048
  4. CHANTIX [Suspect]
     Indication: SMOKING CESSATION THERAPY
     Dosage: 1 MG, 2X/DAY
     Route: 048
     Dates: start: 20111017, end: 20111001
  5. CHANTIX [Suspect]
     Dosage: UNK
     Route: 048
     Dates: start: 20111001, end: 20111001

REACTIONS (4)
  - HYPERSOMNIA [None]
  - DRUG INEFFECTIVE [None]
  - DIZZINESS [None]
  - HEADACHE [None]
